FAERS Safety Report 19810208 (Version 1)
Quarter: 2021Q3

REPORT INFORMATION
  Report Type: Spontaneous
  Country: GR (occurrence: GR)
  Receive Date: 20210909
  Receipt Date: 20210909
  Transmission Date: 20211014
  Serious: Yes (Other)
  Sender: FDA-Public Use
  Company Number: GR-MYLANLABS-2021M1058515

PATIENT
  Age: 62 Year
  Sex: Male

DRUGS (4)
  1. LENALIDOMIDE [Suspect]
     Active Substance: LENALIDOMIDE
     Indication: POEMS SYNDROME
     Dosage: D1?21
     Route: 065
  2. DARZALEX [Suspect]
     Active Substance: DARATUMUMAB
     Dosage: 16 MILLIGRAM/KILOGRAM, QW
  3. DEXAMETHASONE. [Suspect]
     Active Substance: DEXAMETHASONE
     Indication: POEMS SYNDROME
     Dosage: 40 MILLIGRAM, QW
     Route: 065
  4. DARZALEX [Suspect]
     Active Substance: DARATUMUMAB
     Indication: POEMS SYNDROME
     Dosage: MONTHLY FOR CYCLE 7 ONWARDS
     Route: 065

REACTIONS (5)
  - Off label use [Unknown]
  - Neutropenia [Recovered/Resolved]
  - Anaemia [Recovered/Resolved]
  - Product use in unapproved indication [Unknown]
  - Constipation [Recovered/Resolved]
